FAERS Safety Report 5336967-7 (Version None)
Quarter: 2007Q2

REPORT INFORMATION
  Report Type: 
  Country: None (occurrence: None)
  Receive Date: 20070529
  Receipt Date: 20070515
  Transmission Date: 20071010
  Serious: Yes (Other)
  Sender: FDA-Public Use
  Company Number: US-ROCHE-497793

PATIENT
  Age: 61 Year
  Sex: Female

DRUGS (10)
  1. BONIVA [Suspect]
     Indication: DRUG USE FOR UNKNOWN INDICATION
     Route: 065
     Dates: start: 20051201
  2. NASONEX [Concomitant]
  3. ACIPHEX [Concomitant]
  4. SINGULAIR [Concomitant]
  5. PREMARIN CREAM [Concomitant]
  6. ASPIRIN [Concomitant]
  7. VITAMIN B-12 [Concomitant]
  8. FOLIC ACID [Concomitant]
  9. OSCAL D [Concomitant]
  10. GLUCOSAMINE SULFATE/CHONDROITIN [Concomitant]

REACTIONS (1)
  - OSTEONECROSIS [None]
